FAERS Safety Report 15515581 (Version 1)
Quarter: 2018Q4

REPORT INFORMATION
  Report Type: Spontaneous
  Country: AU (occurrence: AU)
  Receive Date: 20181017
  Receipt Date: 20181017
  Transmission Date: 20190205
  Serious: Yes (Other)
  Sender: FDA-Public Use
  Company Number: AU-BAXTER-2017BAX030293

PATIENT
  Age: 41 Year
  Sex: Female

DRUGS (1)
  1. HEPARIN SODIUM 25000IU IN 0.9%NACL 250ML [Suspect]
     Active Substance: HEPARIN SODIUM
     Indication: THROMBOSIS PROPHYLAXIS
     Route: 065

REACTIONS (2)
  - Type IV hypersensitivity reaction [Unknown]
  - Injection site plaque [Unknown]
